FAERS Safety Report 8884690 (Version 1)
Quarter: 2012Q4

REPORT INFORMATION
  Report Type: 
  Country: US (occurrence: US)
  Receive Date: 20121102
  Receipt Date: 20121102
  Transmission Date: 20130627
  Serious: Yes (Hospitalization, Other)
  Sender: FDA-Public Use
  Company Number: US-ASTRAZENECA-2010SE24011

PATIENT
  Sex: Female

DRUGS (1)
  1. NEXIUM [Suspect]
     Route: 048

REACTIONS (11)
  - Brain neoplasm [Unknown]
  - Thyroid neoplasm [Unknown]
  - Aphagia [Unknown]
  - Amnesia [Unknown]
  - Parosmia [Unknown]
  - Condition aggravated [Unknown]
  - Gastrooesophageal reflux disease [Unknown]
  - Malaise [Unknown]
  - Vomiting [Unknown]
  - Ageusia [Unknown]
  - Intentional drug misuse [Unknown]
